FAERS Safety Report 10274726 (Version 4)
Quarter: 2014Q3

REPORT INFORMATION
  Report Type: Spontaneous
  Country: JP (occurrence: JP)
  Receive Date: 20140702
  Receipt Date: 20140916
  Transmission Date: 20150326
  Serious: Yes (Hospitalization, Other)
  Sender: FDA-Public Use
  Company Number: JP-PFIZER INC-2014180538

PATIENT
  Sex: Male

DRUGS (9)
  1. ALDACTONE [Suspect]
     Active Substance: SPIRONOLACTONE
     Dosage: 1 DF, 2X/DAY
     Route: 048
     Dates: start: 2014, end: 20140714
  2. INSULIN [Concomitant]
     Active Substance: INSULIN NOS
     Indication: DIABETES MELLITUS
     Dosage: UNK
     Dates: start: 2013
  3. LYRICA [Suspect]
     Active Substance: PREGABALIN
     Indication: DIZZINESS
     Route: 048
  4. LASIX [Concomitant]
     Active Substance: FUROSEMIDE
     Dosage: ONCE A DAY IN THE MORNING
     Route: 048
  5. ALDACTONE [Suspect]
     Active Substance: SPIRONOLACTONE
     Indication: OEDEMA
     Dosage: 2 DF, 2X/DAY
     Route: 048
     Dates: start: 2012, end: 2014
  6. METLIGINE [Concomitant]
     Active Substance: MIDODRINE HYDROCHLORIDE
     Indication: DIZZINESS
  7. ALDACTONE [Suspect]
     Active Substance: SPIRONOLACTONE
     Dosage: 50 MG, 2X/DAY
     Route: 048
  8. AMINOLEBAN EN [Concomitant]
     Active Substance: UNSPECIFIED INGREDIENT
     Indication: HEPATIC CIRRHOSIS
     Route: 048
  9. ALDACTONE [Suspect]
     Active Substance: SPIRONOLACTONE
     Dosage: 2 DF, 2X/DAY
     Route: 048
     Dates: start: 20140715

REACTIONS (6)
  - Cholelithiasis [Unknown]
  - Oedema [Recovered/Resolved]
  - Blood potassium decreased [Unknown]
  - Nocturia [Unknown]
  - Thirst [Unknown]
  - Weight increased [Unknown]

NARRATIVE: CASE EVENT DATE: 2013
